FAERS Safety Report 9061586 (Version 2)
Quarter: 2013Q1

REPORT INFORMATION
  Report Type: Spontaneous
  Country: IE (occurrence: IE)
  Receive Date: 20130204
  Receipt Date: 20130226
  Transmission Date: 20140127
  Serious: Yes (Hospitalization)
  Sender: FDA-Public Use
  Company Number: PHFR2013IE000987

PATIENT
  Age: 65 None
  Sex: Male

DRUGS (3)
  1. CLOZARIL [Suspect]
     Indication: SCHIZOPHRENIA
     Dosage: UNK UKN, UNK
     Route: 048
     Dates: start: 20101007
  2. CLOZARIL [Suspect]
     Dosage: 350 MG
     Route: 048
     Dates: start: 20121204
  3. CLOZARIL [Suspect]
     Dosage: 350 MG (25MG MANE AND 325MG NOCTE)

REACTIONS (4)
  - Femur fracture [Unknown]
  - Incorrect route of drug administration [Unknown]
  - White blood cell count increased [Unknown]
  - Neutrophil count increased [Unknown]
